FAERS Safety Report 8665622 (Version 2)
Quarter: 2012Q4

REPORT INFORMATION
  Report Type: 
  Country: US (occurrence: US)
  Receive Date: 20120716
  Receipt Date: 20120831
  Transmission Date: 20130627
  Serious: No
  Sender: FDA-Public Use
  Company Number: US-009507513-1207USA002685

PATIENT

DRUGS (4)
  1. VICTRELIS [Suspect]
     Indication: HEPATITIS C
     Dosage: UNK UNK, Unknown
     Dates: start: 201201
  2. PEGINTRON [Suspect]
     Dosage: 150 Microgram, Unknown
     Dates: start: 201112
  3. RIBASPHERE [Concomitant]
     Dosage: UNK UNK, Unknown
     Dates: start: 201112
  4. PROCRIT [Concomitant]
     Dosage: UNK, Unknown

REACTIONS (2)
  - Psoriasis [Unknown]
  - Rash [Unknown]
